FAERS Safety Report 5049532-6 (Version None)
Quarter: 2006Q3

REPORT INFORMATION
  Report Type: 
  Country: None (occurrence: None)
  Receive Date: 20060711
  Receipt Date: 20060711
  Transmission Date: 20061208
  Serious: Yes (Death, Hospitalization)
  Sender: FDA-Public Use
  Company Number: None

PATIENT
  Sex: Male
  Weight: 4.3 kg

DRUGS (18)
  1. CYCLOPHOSPHAMIDE [Suspect]
     Dosage: 250 MG
     Dates: start: 20060619
  2. CYTARABINE [Suspect]
     Dosage: 45 MG
     Dates: start: 20060629
  3. DAUNORUBICIN HCL [Suspect]
     Dosage: 17.2 MG
     Dates: start: 20060616
  4. HYDROCORTISONE [Suspect]
     Dosage: 225 MG
     Dates: start: 20060629
  5. L-ASPARAGINASE [Suspect]
     Dosage: 10500 UNIT
     Dates: start: 20060701
  6. METHOTREXATE [Suspect]
     Dosage: 225 MG
     Dates: start: 20060629
  7. METHYLPREDNISOLONE [Suspect]
     Dosage: 143.1 MG
     Dates: start: 20060703
  8. VINCRISTINE [Suspect]
     Dosage: .53 MG
     Dates: start: 20060629
  9. ALLOPURINO [Concomitant]
  10. ATIVAN [Concomitant]
  11. BACTRIM [Concomitant]
  12. DOPAMINE [Concomitant]
  13. EPINEPHRINE [Concomitant]
  14. FENTANYL TRANSDERMAL SYSTEM [Concomitant]
  15. NEUPOGEN [Concomitant]
  16. METHADONE HCL [Concomitant]
  17. PROPOFUL [Concomitant]
  18. HEPARIN [Concomitant]

REACTIONS (21)
  - ABDOMINAL DISTENSION [None]
  - BOWEL SOUNDS ABNORMAL [None]
  - CLOSTRIDIAL INFECTION [None]
  - DISEASE PROGRESSION [None]
  - GASTROINTESTINAL HAEMORRHAGE [None]
  - HYPOTENSION [None]
  - LOWER GASTROINTESTINAL HAEMORRHAGE [None]
  - NECROTISING FASCIITIS [None]
  - NEUTROPENIC SEPSIS [None]
  - OEDEMA [None]
  - PSEUDOMONAS INFECTION [None]
  - RECTAL HAEMORRHAGE [None]
  - REFUSAL OF TREATMENT BY RELATIVE [None]
  - RESPIRATORY DISTRESS [None]
  - SEPSIS [None]
  - SEPTIC SHOCK [None]
  - SINUS TACHYCARDIA [None]
  - TACHYCARDIA [None]
  - TACHYPNOEA [None]
  - THERAPY NON-RESPONDER [None]
  - THROMBOCYTOPENIA [None]
